FAERS Safety Report 7408768-7 (Version None)
Quarter: 2011Q2

REPORT INFORMATION
  Report Type: 
  Country: None (occurrence: None)
  Receive Date: 20110412
  Receipt Date: 20110331
  Transmission Date: 20111010
  Serious: Yes (Other)
  Sender: FDA-Public Use
  Company Number: JP-ASTRAZENECA-2011SE20153

PATIENT
  Age: 63 Year
  Sex: Female

DRUGS (3)
  1. MEROPEN [Suspect]
     Indication: FEBRILE NEUTROPENIA
     Route: 042
     Dates: start: 20100628, end: 20100712
  2. DOPAMINE HCL [Concomitant]
  3. ZOSYN [Concomitant]
     Indication: FEBRILE NEUTROPENIA
     Dosage: 13.5  MGRAM/DAY
     Route: 042

REACTIONS (1)
  - HYPONATRAEMIA [None]
